FAERS Safety Report 5251890-4 (Version None)
Quarter: 2007Q1

REPORT INFORMATION
  Report Type: 
  Country: None (occurrence: None)
  Receive Date: 20070223
  Receipt Date: 20070216
  Transmission Date: 20070707
  Serious: Yes (Hospitalization)
  Sender: FDA-Public Use
  Company Number: 2006SP008663

PATIENT
  Age: 73 Year
  Sex: Male
  Weight: 69 kg

DRUGS (15)
  1. TEMODAL [Suspect]
     Indication: GLIOBLASTOMA MULTIFORME
     Dosage: SEE IMAGE
     Route: 048
     Dates: start: 20060814, end: 20061001
  2. TEMODAL [Suspect]
     Indication: GLIOBLASTOMA MULTIFORME
     Dosage: SEE IMAGE
     Route: 048
     Dates: start: 20061025, end: 20061104
  3. RADIATION THERAPY (THERAPEUTIC RADIOPHARMACEUTICALS) [Suspect]
     Indication: GLIOBLASTOMA MULTIFORME
     Dates: start: 20060814, end: 20060925
  4. DILANTIN [Concomitant]
  5. PROCHLORPERAZINE [Concomitant]
  6. ZANTAC [Concomitant]
  7. BISACODYL [Concomitant]
  8. CALCIUM CARBONATE [Concomitant]
  9. CLOTRIMAZOLE [Concomitant]
  10. COLACE [Concomitant]
  11. COUMADIN [Concomitant]
  12. FLAGYL [Concomitant]
  13. TIMENTIN [Concomitant]
  14. TYLENOL [Concomitant]
  15. DEXAMETHASONE [Concomitant]

REACTIONS (8)
  - CLOSTRIDIAL INFECTION [None]
  - CRYPTOCOCCOSIS [None]
  - LUNG NEOPLASM [None]
  - OSTEOMYELITIS [None]
  - PNEUMOTHORAX [None]
  - PSEUDOMONAS INFECTION [None]
  - PULMONARY EMBOLISM [None]
  - SUBCUTANEOUS EMPHYSEMA [None]
